FAERS Safety Report 15596212 (Version 5)
Quarter: 2019Q1

REPORT INFORMATION
  Report Type: Spontaneous
  Country: PL (occurrence: PL)
  Receive Date: 20181107
  Receipt Date: 20190315
  Transmission Date: 20190417
  Serious: Yes (Other)
  Sender: FDA-Public Use
  Company Number: PHHY2018PL143756

PATIENT
  Sex: Female

DRUGS (7)
  1. PYRIMETHAMINE [Suspect]
     Active Substance: PYRIMETHAMINE
     Indication: EYE INFECTION TOXOPLASMAL
     Dosage: 25 MG, ((TWICE DAILY FOR THE FIRST TWO DAYS, FOLLOWED BY ONCE DAILY ON DAYS 3?21))
     Route: 065
  2. SULFADOXINE [Suspect]
     Active Substance: SULFADOXINE
     Indication: EYE INFECTION TOXOPLASMAL
     Dosage: 500 MG, UNK (TWICE DAILY FOR THE FIRST TWO DAYS, FOLLOWED BY ONCE DAILY ON DAYS 3-21)
     Route: 065
  3. SPIRAMYCIN [Suspect]
     Active Substance: SPIRAMYCIN
     Indication: EYE INFECTION TOXOPLASMAL
     Dosage: 3 M, TID
     Route: 065
  4. RANITIDINE. [Concomitant]
     Active Substance: RANITIDINE
     Indication: GASTRITIS PROPHYLAXIS
     Dosage: UNK
     Route: 048
  5. AZITHROMYCIN ANHYDROUS. [Suspect]
     Active Substance: AZITHROMYCIN ANHYDROUS
     Indication: EYE INFECTION TOXOPLASMAL
     Dosage: 500 MG, QD
     Route: 048
  6. OMEPRAZOLE. [Concomitant]
     Active Substance: OMEPRAZOLE
     Indication: GASTRITIS PROPHYLAXIS
     Dosage: UNK
     Route: 048
  7. ENCORTON [Suspect]
     Active Substance: PREDNISONE
     Indication: EYE INFECTION TOXOPLASMAL
     Dosage: 40 MG IN THE MORNING
     Route: 048

REACTIONS (3)
  - Leukopenia [Unknown]
  - Abdominal pain [Unknown]
  - Thrombocytopenia [Unknown]
